FAERS Safety Report 20619566 (Version 2)
Quarter: 2024Q2

REPORT INFORMATION
  Report Type: Spontaneous
  Country: AU (occurrence: AU)
  Receive Date: 20220322
  Receipt Date: 20240401
  Transmission Date: 20240716
  Serious: Yes (Other)
  Sender: FDA-Public Use
  Company Number: AU-LUPIN PHARMACEUTICALS INC.-2022-03877

PATIENT
  Sex: Female

DRUGS (1)
  1. MORPHINE SULFATE [Suspect]
     Active Substance: MORPHINE SULFATE
     Indication: Analgesic therapy
     Dosage: UNK
     Route: 064

REACTIONS (4)
  - Exposure during pregnancy [Unknown]
  - Infantile apnoea [Recovered/Resolved]
  - Muscle tone disorder [Recovered/Resolved]
  - Skin discolouration [Recovered/Resolved]
